FAERS Safety Report 8297329-6 (Version None)
Quarter: 2012Q2

REPORT INFORMATION
  Report Type: 
  Country: None (occurrence: None)
  Receive Date: 20120417
  Receipt Date: 20120404
  Transmission Date: 20120825
  Serious: Yes (Congenital Anomaly, Other)
  Sender: FDA-Public Use
  Company Number: 20120175

PATIENT

DRUGS (6)
  1. PHENYTOIN SODIUM [Suspect]
     Indication: EPILEPSY
     Dosage: 200 MG,
  2. PHENYTOIN SODIUM [Suspect]
     Indication: AFFECTIVE DISORDER
     Dosage: 200 MG,
  3. TOPIRAMATE [Suspect]
     Indication: EPILEPSY
     Dosage: 550 MG AT MOTHER'S LMP
  4. TOPIRAMATE [Suspect]
     Indication: AFFECTIVE DISORDER
     Dosage: 550 MG AT MOTHER'S LMP
  5. LAMOTRIGINE [Suspect]
     Indication: AFFECTIVE DISORDER
     Dosage: 300 MG,
  6. LAMOTRIGINE [Suspect]
     Indication: EPILEPSY
     Dosage: 300 MG,

REACTIONS (3)
  - CONGENITAL DERMAL SINUS [None]
  - TETHERED CORD SYNDROME [None]
  - MATERNAL DRUGS AFFECTING FOETUS [None]
